FAERS Safety Report 7196954-3 (Version None)
Quarter: 2010Q4

REPORT INFORMATION
  Report Type: 
  Country: None (occurrence: None)
  Receive Date: 20101224
  Receipt Date: 20101220
  Transmission Date: 20110411
  Serious: Yes (Hospitalization)
  Sender: FDA-Public Use
  Company Number: DE-BIOGENIDEC-2010BI021670

PATIENT
  Age: 41 Year
  Sex: Female
  Weight: 66 kg

DRUGS (1)
  1. AVONEX [Suspect]
     Indication: RELAPSING-REMITTING MULTIPLE SCLEROSIS
     Route: 030
     Dates: start: 20070101

REACTIONS (5)
  - ARTHRALGIA [None]
  - BRONCHIAL DISORDER [None]
  - ERYTHEMA NODOSUM [None]
  - LYMPHADENOPATHY [None]
  - SARCOIDOSIS [None]
